FAERS Safety Report 16103850 (Version 3)
Quarter: 2019Q2

REPORT INFORMATION
  Report Type: Spontaneous
  Country: CA (occurrence: CA)
  Receive Date: 20190322
  Receipt Date: 20190606
  Transmission Date: 20190711
  Serious: Yes (Hospitalization, Other)
  Sender: FDA-Public Use
  Company Number: CA-CELLTRION INC.-2019CA017859

PATIENT

DRUGS (7)
  1. INFLECTRA [Suspect]
     Active Substance: INFLIXIMAB-DYYB
     Indication: CROHN^S DISEASE
     Dosage: 300 MG, (0,2,6 WEEKS, THEN EVERY 8 WEEKS)
     Route: 042
     Dates: start: 20181213
  2. INFLECTRA [Suspect]
     Active Substance: INFLIXIMAB-DYYB
     Dosage: 300 MG, (0,2,6 WEEKS, THEN EVERY 8 WEEKS)
     Route: 042
     Dates: start: 20190204
  3. INFLECTRA [Suspect]
     Active Substance: INFLIXIMAB-DYYB
     Dosage: 300 MG, (0,2,6 WEEKS, THEN EVERY 8 WEEKS)
     Route: 042
     Dates: start: 20190524
  4. INFLECTRA [Suspect]
     Active Substance: INFLIXIMAB-DYYB
     Dosage: 300 MG, (0,2,6 WEEKS, THEN EVERY 8 WEEKS)
     Route: 042
     Dates: start: 20181231
  5. PREDNISONE. [Concomitant]
     Active Substance: PREDNISONE
     Dosage: UNK
  6. INFLECTRA [Suspect]
     Active Substance: INFLIXIMAB-DYYB
     Dosage: 300 MG, (0,2,6 WEEKS, THEN EVERY 8 WEEKS)
     Route: 042
     Dates: start: 20190402
  7. PENTASA [Concomitant]
     Active Substance: MESALAMINE
     Dosage: UNK

REACTIONS (10)
  - Enterocele [Unknown]
  - Fatigue [Unknown]
  - Pain [Recovering/Resolving]
  - Large intestinal stenosis [Unknown]
  - Weight increased [Unknown]
  - Oropharyngeal pain [Recovering/Resolving]
  - Headache [Unknown]
  - Sleep disorder [Unknown]
  - Pyrexia [Recovering/Resolving]
  - Condition aggravated [Unknown]

NARRATIVE: CASE EVENT DATE: 20181231
